FAERS Safety Report 8453634-1 (Version None)
Quarter: 2012Q2

REPORT INFORMATION
  Report Type: 
  Country: None (occurrence: None)
  Receive Date: 20120620
  Receipt Date: 20120613
  Transmission Date: 20120825
  Serious: Yes (Hospitalization, Disabling, Other)
  Sender: FDA-Public Use
  Company Number: US-MERCK-1203USA03347

PATIENT
  Age: 63 Year
  Sex: Female

DRUGS (26)
  1. FOSAMAX [Suspect]
     Indication: OSTEOPENIA
     Route: 048
     Dates: start: 20040501, end: 20080101
  2. FLONASE [Concomitant]
     Indication: HYPERSENSITIVITY
     Route: 065
     Dates: start: 20020101, end: 20020101
  3. PHENERGAN EXPECTORANT W/ CODEINE [Concomitant]
     Indication: UPPER RESPIRATORY TRACT INFECTION
     Route: 065
     Dates: start: 20020101, end: 20090101
  4. ALBUTEROL [Concomitant]
     Indication: ASTHMA
     Route: 065
     Dates: start: 20040101
  5. FOSAMAX [Suspect]
     Route: 048
     Dates: start: 20080101, end: 20101001
  6. CELEBREX [Concomitant]
     Indication: ARTHRITIS
     Route: 065
     Dates: start: 20010101, end: 20080101
  7. ASTELIN [Concomitant]
     Indication: HYPERSENSITIVITY
     Route: 065
     Dates: start: 20040101
  8. LEFLUNOMIDE [Concomitant]
     Route: 065
  9. CLARITIN-D [Concomitant]
     Indication: HYPERSENSITIVITY
     Route: 048
     Dates: start: 20020101, end: 20090101
  10. COMBIVENT [Concomitant]
     Indication: ASTHMA
     Route: 065
     Dates: start: 20030101, end: 20090101
  11. TILADE [Concomitant]
     Indication: ASTHMA
     Route: 065
     Dates: start: 20030101, end: 20090101
  12. ARAVA [Concomitant]
     Indication: ARTHRITIS
     Route: 065
     Dates: start: 20010101
  13. CALCIUM (UNSPECIFIED) AND VITAMIN D (UNSPECIFIED) [Concomitant]
     Route: 065
     Dates: start: 20030101
  14. FLOVENT [Concomitant]
     Route: 065
     Dates: start: 20030101, end: 20090101
  15. GUAIFENESIN [Concomitant]
     Indication: UPPER RESPIRATORY TRACT INFECTION
     Route: 065
     Dates: start: 20020101
  16. PLAQUENIL [Concomitant]
     Indication: SYNOVITIS
     Route: 065
  17. CALCIUM (UNSPECIFIED) AND MAGNESIUM (UNSPECIFIED) AND ZINC (UNSPECIFIE [Concomitant]
     Route: 065
     Dates: start: 20030101
  18. LIPITOR [Concomitant]
     Indication: BLOOD CHOLESTEROL
     Route: 065
     Dates: start: 19980101
  19. ADVAIR DISKUS 100/50 [Concomitant]
     Indication: HYPERSENSITIVITY
     Route: 065
     Dates: start: 20040101
  20. AMOXICILLIN [Concomitant]
     Indication: UPPER RESPIRATORY TRACT INFECTION
     Route: 065
     Dates: start: 20020101, end: 20090101
  21. METHOTREXATE [Concomitant]
     Route: 065
     Dates: start: 20020101
  22. PREDNISONE [Concomitant]
     Route: 065
     Dates: start: 20020101
  23. ASCORBIC ACID [Concomitant]
     Route: 065
     Dates: start: 20030101
  24. OMEGA-3 MARINE TRIGLYCERIDES [Concomitant]
     Route: 065
     Dates: start: 19940101
  25. PROVENTIL [Concomitant]
     Indication: ASTHMA
     Route: 065
     Dates: start: 20030101, end: 20090101
  26. SINGULAIR [Concomitant]
     Route: 048
     Dates: start: 20020101, end: 20070101

REACTIONS (40)
  - FEMUR FRACTURE [None]
  - LUMBAR SPINAL STENOSIS [None]
  - STAPHYLOCOCCAL INFECTION [None]
  - OSTEOPOROSIS [None]
  - STRESS FRACTURE [None]
  - ATRIAL FIBRILLATION [None]
  - VIRAL INFECTION [None]
  - TENOSYNOVITIS [None]
  - DEVICE BREAKAGE [None]
  - CARDIAC DISORDER [None]
  - CATARACT [None]
  - TACHYCARDIA [None]
  - DIABETES MELLITUS [None]
  - HYPERTENSION [None]
  - VERTIGO [None]
  - SPONDYLOARTHROPATHY [None]
  - GALLBLADDER DISORDER [None]
  - FLATULENCE [None]
  - URINARY TRACT DISORDER [None]
  - BURSITIS [None]
  - ARTHROPATHY [None]
  - INTERVERTEBRAL DISC DEGENERATION [None]
  - DYSAESTHESIA [None]
  - TOOTH DISORDER [None]
  - ADVERSE EVENT [None]
  - LOW TURNOVER OSTEOPATHY [None]
  - ERYTHEMA [None]
  - LIVER FUNCTION TEST ABNORMAL [None]
  - ELECTROCARDIOGRAM ST-T CHANGE [None]
  - DIZZINESS [None]
  - CHRONIC OBSTRUCTIVE PULMONARY DISEASE [None]
  - OSTEOMYELITIS CHRONIC [None]
  - FRACTURE NONUNION [None]
  - UPPER RESPIRATORY TRACT INFECTION [None]
  - GASTROOESOPHAGEAL REFLUX DISEASE [None]
  - ROTATOR CUFF SYNDROME [None]
  - DRUG INEFFECTIVE [None]
  - FRACTURE DELAYED UNION [None]
  - FATIGUE [None]
  - DRUG INTERACTION [None]
